FAERS Safety Report 6689675-4 (Version None)
Quarter: 2010Q2

REPORT INFORMATION
  Report Type: 
  Country: None (occurrence: None)
  Receive Date: 20100421
  Receipt Date: 20100408
  Transmission Date: 20101027
  Serious: No
  Sender: FDA-Public Use
  Company Number: 2010BI004281

PATIENT
  Sex: Female

DRUGS (1)
  1. TYSABRI [Suspect]
     Indication: MULTIPLE SCLEROSIS
     Route: 042
     Dates: start: 20071019

REACTIONS (23)
  - AMENORRHOEA [None]
  - ARTHRALGIA [None]
  - BALANCE DISORDER [None]
  - BRONCHITIS [None]
  - CHILLS [None]
  - COGNITIVE DISORDER [None]
  - COLITIS [None]
  - CONSTIPATION [None]
  - DIARRHOEA [None]
  - DYSARTHRIA [None]
  - FALL [None]
  - FATIGUE [None]
  - GASTROINTESTINAL PAIN [None]
  - HEADACHE [None]
  - HEPATIC ENZYME INCREASED [None]
  - HYPOAESTHESIA [None]
  - INTERVERTEBRAL DISC PROTRUSION [None]
  - NAUSEA [None]
  - PAIN [None]
  - PAIN IN EXTREMITY [None]
  - POOR PERIPHERAL CIRCULATION [None]
  - URINARY INCONTINENCE [None]
  - VOMITING [None]
